FAERS Safety Report 20504266 (Version 2)
Quarter: 2022Q1

REPORT INFORMATION
  Report Type: Spontaneous
  Country: JP (occurrence: JP)
  Receive Date: 20220222
  Receipt Date: 20220311
  Transmission Date: 20220424
  Serious: Yes (Death, Hospitalization)
  Sender: FDA-Public Use
  Company Number: JP-PFIZER INC-202200257297

PATIENT
  Age: 73 Year
  Sex: Male
  Weight: 54.8 kg

DRUGS (6)
  1. VYNDAQEL [Suspect]
     Active Substance: TAFAMIDIS MEGLUMINE
     Indication: Cardiac amyloidosis
     Dosage: 80 MG
     Route: 048
     Dates: start: 20200325
  2. VYNDAQEL [Suspect]
     Active Substance: TAFAMIDIS MEGLUMINE
     Dosage: 20 MG X4 TABLETS, 1X/DAY (IN THE MORNING)
     Route: 048
     Dates: start: 20210408, end: 20210610
  3. ENTRESTO [Concomitant]
     Active Substance: SACUBITRIL\VALSARTAN
     Indication: Cardiac failure
     Dosage: 100 MG, 2X
     Dates: start: 20210331, end: 20210610
  4. ESAXERENONE [Concomitant]
     Active Substance: ESAXERENONE
     Indication: Cardiac failure
     Dosage: 2.5 MG, 1X
     Dates: start: 20210331, end: 20210610
  5. AZOSEMIDE [Concomitant]
     Active Substance: AZOSEMIDE
     Indication: Cardiac failure
     Dosage: 30 MG, 1X
     Dates: start: 20210331, end: 20210610
  6. BISOPROLOL [Concomitant]
     Active Substance: BISOPROLOL
     Indication: Cardiac failure
     Dosage: 0.625 MG, 1X
     Dates: start: 20210331, end: 20210610

REACTIONS (1)
  - Pancreatic carcinoma [Fatal]

NARRATIVE: CASE EVENT DATE: 20210612
